FAERS Safety Report 20375729 (Version 6)
Quarter: 2022Q3

REPORT INFORMATION
  Report Type: Report from Study
  Country: CN (occurrence: CN)
  Receive Date: 20220125
  Receipt Date: 20220804
  Transmission Date: 20221027
  Serious: Yes (Hospitalization)
  Sender: FDA-Public Use
  Company Number: CN-KARYOPHARM-2022KPT000060

PATIENT
  Age: 70 Year
  Sex: Female
  Weight: 71 kg

DRUGS (31)
  1. SELINEXOR [Suspect]
     Active Substance: SELINEXOR
     Indication: Diffuse large B-cell lymphoma
     Dosage: 40 MG ON DAYS 1 AND 8 OF A 21-DAY CYCLE
     Route: 048
     Dates: start: 20211224, end: 20220114
  2. SELINEXOR [Suspect]
     Active Substance: SELINEXOR
     Dosage: 20 MG ON DAYS 1 AND 8 OF A 21-DAY CYCLE
     Route: 048
     Dates: start: 20220127, end: 20220225
  3. SELINEXOR [Suspect]
     Active Substance: SELINEXOR
     Dosage: 20 MG ON DAYS 1 AND 8 OF A 21-DAY CYCLE
     Route: 048
     Dates: start: 20220304, end: 20220424
  4. SELINEXOR [Suspect]
     Active Substance: SELINEXOR
     Dosage: 20 MG ON DAYS 1 AND 8 OF A 21-DAY CYCLE
     Route: 048
     Dates: start: 20220424
  5. RITUXIMAB [Suspect]
     Active Substance: RITUXIMAB
     Indication: Diffuse large B-cell lymphoma
     Dosage: 375 MG/M2 ON DAY 1 OF A 21-DAY CYCLE
     Route: 042
     Dates: start: 20211224, end: 20220114
  6. RITUXIMAB [Suspect]
     Active Substance: RITUXIMAB
     Dosage: 375 MG/M2 ON DAY 1 OF A 21-DAY CYCLE
     Route: 042
     Dates: start: 20220127, end: 20220424
  7. RITUXIMAB [Suspect]
     Active Substance: RITUXIMAB
     Dosage: 375 MG/M2 ON DAY 1 OF A 21-DAY CYCLE
     Route: 042
     Dates: start: 20220614
  8. GEMCITABINE [Suspect]
     Active Substance: GEMCITABINE
     Indication: Diffuse large B-cell lymphoma
     Dosage: 1000 MG/M2 ON DAYS 1 AND 8 OF A 21-DAY CYCLE
     Route: 042
     Dates: start: 20211224, end: 20220114
  9. GEMCITABINE [Suspect]
     Active Substance: GEMCITABINE
     Dosage: 1000 MG/M2 ON DAYS 1 AND 8 OF A 21-DAY CYCLE
     Route: 042
     Dates: start: 20220127, end: 20220424
  10. GEMCITABINE [Suspect]
     Active Substance: GEMCITABINE
     Dosage: 1000 MG/M2 ON DAYS 1 AND 8 OF A 21-DAY CYCLE
     Route: 042
     Dates: start: 20220614
  11. DEXAMETHASONE [Suspect]
     Active Substance: DEXAMETHASONE
     Indication: Diffuse large B-cell lymphoma
     Dosage: 10 MG ON DAYS 1-4 OF A 21-DAY CYCLE
     Route: 048
     Dates: start: 20211224, end: 20220114
  12. DEXAMETHASONE [Suspect]
     Active Substance: DEXAMETHASONE
     Dosage: 10 MG ON DAYS 1-4 OF A 21-DAY CYCLE
     Route: 048
     Dates: start: 20220127, end: 20220424
  13. DEXAMETHASONE [Suspect]
     Active Substance: DEXAMETHASONE
     Dosage: 10 MG ON DAYS 1-4 OF A 21-DAY CYCLE
     Route: 048
     Dates: start: 20220614
  14. CISPLATIN [Suspect]
     Active Substance: CISPLATIN
     Indication: Diffuse large B-cell lymphoma
     Dosage: 56 MG/M2 ON DAY 1 OF A 21-DAY CYCLE
     Route: 042
     Dates: start: 20211224, end: 20220114
  15. PALONOSETRON [Concomitant]
     Active Substance: PALONOSETRON
     Indication: Prophylaxis of nausea and vomiting
     Dosage: 0.5 MG, SINGLE ON DAYS 1 AND 8
     Route: 048
     Dates: start: 20211224, end: 20211224
  16. PALONOSETRON [Concomitant]
     Active Substance: PALONOSETRON
     Dosage: 0.5 MG, SINGLE ON DAYS 1 AND 8
     Route: 048
     Dates: start: 20211231, end: 20211231
  17. APREPITANT [Concomitant]
     Active Substance: APREPITANT
     Indication: Prophylaxis of nausea and vomiting
     Dosage: 1 DOSAGE FORM, QD ON DAYS 1-3
     Route: 048
     Dates: start: 20211224, end: 20211226
  18. MECAPEGFILGRASTIM [Concomitant]
     Active Substance: MECAPEGFILGRASTIM
     Indication: Product used for unknown indication
     Dosage: 6 MG, SINGLE
     Route: 065
     Dates: start: 20220101, end: 20220101
  19. ENTECAVIR [Concomitant]
     Active Substance: ENTECAVIR
     Indication: Hepatitis B
     Dosage: 0.5 MG, QD
     Route: 048
     Dates: start: 20211224
  20. AMLODIPINE [Concomitant]
     Active Substance: AMLODIPINE BESYLATE
     Indication: Hypertension
     Dosage: 5 MG, QD
     Route: 048
     Dates: start: 2011
  21. OMEPRAZOLE [Concomitant]
     Active Substance: OMEPRAZOLE
     Indication: Hyperchlorhydria
     Dosage: 20 MG, BID
     Route: 048
     Dates: start: 20211224, end: 20211224
  22. LOSARTAN [Concomitant]
     Active Substance: LOSARTAN
     Indication: Hypertension
     Dosage: 50 MG, QD
     Route: 065
     Dates: start: 2011
  23. INSULIN ASPART [Concomitant]
     Active Substance: INSULIN ASPART
     Indication: Type 2 diabetes mellitus
     Dosage: 3 ML, QD
     Route: 058
     Dates: start: 2009
  24. ACETYLCYSTEINE [Concomitant]
     Active Substance: ACETYLCYSTEINE
     Indication: Prophylaxis
     Dosage: 600 MG, QD
     Route: 050
     Dates: start: 20211224, end: 20211224
  25. VALSARTAN [Concomitant]
     Active Substance: VALSARTAN
     Indication: Hypertension
     Dosage: 50 MG, QD
     Route: 048
  26. GLIPIZIDE [Concomitant]
     Active Substance: GLIPIZIDE
     Indication: Diabetes mellitus
     Dosage: 15 MG, TID
     Route: 048
  27. METFORMIN [Concomitant]
     Active Substance: METFORMIN HYDROCHLORIDE
     Indication: Diabetes mellitus
     Dosage: 1.5 G, TID
     Route: 048
  28. MOSAPRIDE CITRATE [Concomitant]
     Active Substance: MOSAPRIDE CITRATE
     Indication: Prophylaxis
     Dosage: 5 UG, QD
     Route: 048
     Dates: start: 20220107
  29. OPRELVEKIN [Concomitant]
     Active Substance: OPRELVEKIN
     Indication: Product used for unknown indication
     Dosage: 3 MG, QD
     Route: 065
     Dates: start: 20220110, end: 20220111
  30. SHENG XUE BAO HE JI [Concomitant]
     Indication: Product used for unknown indication
     Dosage: 15 ML, TID
     Route: 065
     Dates: start: 20220110
  31. ETHAMSYLATE [Concomitant]
     Active Substance: ETHAMSYLATE
     Indication: Product used for unknown indication
     Dosage: 1 G, QD
     Route: 065
     Dates: start: 20220112, end: 20220112

REACTIONS (1)
  - Platelet count decreased [Recovered/Resolved]

NARRATIVE: CASE EVENT DATE: 20220113
